FAERS Safety Report 25467330 (Version 1)
Quarter: 2025Q2

REPORT INFORMATION
  Report Type: Report from Study
  Country: ES (occurrence: ES)
  Receive Date: 20250623
  Receipt Date: 20250623
  Transmission Date: 20250717
  Serious: Yes (Hospitalization, Other)
  Sender: ABBVIE
  Company Number: ES-ABBVIE-6335255

PATIENT
  Age: 85 Year
  Sex: Female

DRUGS (2)
  1. CARBIDOPA\LEVODOPA [Suspect]
     Active Substance: CARBIDOPA\LEVODOPA
     Indication: Parkinson^s disease
     Route: 050
     Dates: start: 20150930
  2. CARBIDOPA\LEVODOPA [Suspect]
     Active Substance: CARBIDOPA\LEVODOPA

REACTIONS (8)
  - Urinary tract infection [Recovering/Resolving]
  - Bedridden [Unknown]
  - Decubitus ulcer [Recovering/Resolving]
  - Urinary incontinence [Unknown]
  - Terminal state [Unknown]
  - Bladder dilatation [Unknown]
  - Urine output increased [Unknown]
  - Anal incontinence [Unknown]

NARRATIVE: CASE EVENT DATE: 20250501
